FAERS Safety Report 25055212 (Version 1)
Quarter: 2025Q1

REPORT INFORMATION
  Report Type: Spontaneous
  Country: FR (occurrence: FR)
  Receive Date: 20250308
  Receipt Date: 20250308
  Transmission Date: 20250408
  Serious: Yes (Other)
  Sender: AUROBINDO
  Company Number: FR-AFSSAPS-RE2025000198

PATIENT
  Age: 58 Year
  Sex: Male
  Weight: 83 kg

DRUGS (7)
  1. AMOXICILLIN [Suspect]
     Active Substance: AMOXICILLIN
     Indication: Bursitis infective
     Dosage: 2 GRAM, ONCE A DAY
     Route: 048
     Dates: start: 20240926, end: 20240927
  2. AMOXICILLIN [Suspect]
     Active Substance: AMOXICILLIN
     Indication: Bursitis infective
     Dosage: 2 GRAM, ONCE A DAY
     Route: 048
     Dates: start: 20240921, end: 20240926
  3. DOLIPRANE [Suspect]
     Active Substance: ACETAMINOPHEN
     Indication: Pain
     Route: 048
     Dates: start: 20240926, end: 20240927
  4. AUGMENTIN [Suspect]
     Active Substance: AMOXICILLIN\CLAVULANATE POTASSIUM
     Indication: Bursitis infective
     Dosage: 3 DOSAGE FORM, ONCE A DAY
     Route: 048
     Dates: start: 20240923, end: 20240926
  5. AMOXICILLIN\CLAVULANATE POTASSIUM [Suspect]
     Active Substance: AMOXICILLIN\CLAVULANATE POTASSIUM
     Indication: Bursitis infective
     Dosage: 3 GRAM, ONCE A DAY
     Route: 048
     Dates: start: 20240926, end: 20240927
  6. LOVENOX [Concomitant]
     Active Substance: ENOXAPARIN SODIUM
     Indication: Product used for unknown indication
     Route: 065
  7. NEFOPAM [Concomitant]
     Active Substance: NEFOPAM
     Indication: Product used for unknown indication
     Route: 065

REACTIONS (2)
  - Hepatic cytolysis [Recovering/Resolving]
  - Cholestasis [Recovering/Resolving]

NARRATIVE: CASE EVENT DATE: 20240927
